FAERS Safety Report 4978154-8 (Version None)
Quarter: 2006Q2

REPORT INFORMATION
  Report Type: 
  Country: None (occurrence: None)
  Receive Date: 20060417
  Receipt Date: 20060405
  Transmission Date: 20061013
  Serious: Yes (Other)
  Sender: FDA-Public Use
  Company Number: 223993

PATIENT
  Age: 48 Year
  Sex: Female
  Weight: 101.6 kg

DRUGS (1)
  1. HERCEPTIN [Suspect]
     Indication: BREAST CANCER
     Dosage: SEE IMAGE, INTRAVENOUS
     Route: 042
     Dates: start: 20060217

REACTIONS (4)
  - CARDIOTOXICITY [None]
  - CHEST DISCOMFORT [None]
  - CHILLS [None]
  - SENSATION OF FOREIGN BODY [None]
